FAERS Safety Report 5848915-1 (Version None)
Quarter: 2008Q3

REPORT INFORMATION
  Report Type: 
  Country: None (occurrence: None)
  Receive Date: 20080819
  Receipt Date: 20080808
  Transmission Date: 20090109
  Serious: Yes (Other)
  Sender: FDA-Public Use
  Company Number: MY-RANBAXY-2008RR-17136

PATIENT

DRUGS (4)
  1. MIDAZOLAM HCL [Suspect]
     Dosage: 450 MG, QD
  2. MIDAZOLAM HCL [Suspect]
     Dosage: 150 MG, QD
  3. MIDAZOLAM HCL [Suspect]
     Dosage: 60 MG, QD
  4. MIDAZOLAM HCL [Suspect]
     Dosage: 30 MG, QD

REACTIONS (3)
  - DEPRESSION [None]
  - INSOMNIA [None]
  - MYOCLONUS [None]
